FAERS Safety Report 9170103 (Version 1)
Quarter: 2013Q1

REPORT INFORMATION
  Report Type: Spontaneous
  Country: US (occurrence: None)
  Receive Date: 20130311
  Receipt Date: 20130311
  Transmission Date: 20140127
  Serious: Yes (Hospitalization)
  Sender: FDA-Public Use
  Company Number: NSR_01051_2013

PATIENT
  Age: 57 Year
  Sex: Female

DRUGS (5)
  1. TRAMADOL (TRAMADOL) [Suspect]
     Indication: MUSCULOSKELETAL PAIN
     Dosage: (DF [INCREASED DOSE])
  2. TRAMADOL (TRAMADOL) [Suspect]
     Indication: PAIN
     Dosage: (DF [INCREASED DOSE])
  3. ACETAMINOPHEN [Concomitant]
  4. PREGABALIN [Concomitant]
  5. TRICYCLIC ANTIDEPRESSANTS [Concomitant]

REACTIONS (4)
  - Pain [None]
  - Hyperhidrosis [None]
  - Irritability [None]
  - Hyperaesthesia [None]
